FAERS Safety Report 24115925 (Version 4)
Quarter: 2025Q4

REPORT INFORMATION
  Report Type: Spontaneous
  Country: CA (occurrence: CA)
  Receive Date: 20240721
  Receipt Date: 20251101
  Transmission Date: 20260117
  Serious: Yes (Hospitalization, Other)
  Sender: CELLTRION
  Company Number: CA-CELLTRION INC.-2024CA017079

PATIENT

DRUGS (4)
  1. YUFLYMA [Suspect]
     Active Substance: ADALIMUMAB-AATY
     Indication: Crohn^s disease
     Dosage: 80 MG WEEKLY
     Route: 058
     Dates: start: 20231226
  2. YUFLYMA [Suspect]
     Active Substance: ADALIMUMAB-AATY
  3. METHOTREXATE [Concomitant]
     Active Substance: METHOTREXATE
     Dosage: 2.5MG (8 PILLS)/ WEEKLY
     Dates: start: 2021
  4. METHOTREXATE [Concomitant]
     Active Substance: METHOTREXATE
     Dosage: 2.5 MILLIGRAM

REACTIONS (6)
  - Crohn^s disease [Unknown]
  - Back disorder [Unknown]
  - Spinal operation [Unknown]
  - Intentional dose omission [Unknown]
  - Off label use [Unknown]
  - Off label use [Unknown]
